FAERS Safety Report 4310160-9 (Version None)
Quarter: 2004Q1

REPORT INFORMATION
  Report Type: 
  Country: None (occurrence: None)
  Receive Date: 20040302
  Receipt Date: 20040302
  Transmission Date: 20041129
  Serious: Yes (Life-Threatening, Hospitalization)
  Sender: FDA-Public Use
  Company Number: None

PATIENT
  Sex: Male
  Weight: 55.7924 kg

DRUGS (5)
  1. GEMCITABINE [Suspect]
     Indication: PANCREATIC CARCINOMA
     Dosage: 1000 MG/M2
     Dates: start: 20031202, end: 20040217
  2. OXALIPLATION [Suspect]
     Indication: PANCREATIC CARCINOMA
     Dosage: 100 MG/M2
     Dates: start: 20031202, end: 20040218
  3. MEGACE [Concomitant]
  4. LOVENOX [Concomitant]
  5. MORPHINE SULFATE [Concomitant]

REACTIONS (5)
  - AGITATION [None]
  - ANXIETY [None]
  - DYSPNOEA [None]
  - FALL [None]
  - MENTAL STATUS CHANGES [None]
